FAERS Safety Report 7196878-1 (Version None)
Quarter: 2010Q4

REPORT INFORMATION
  Report Type: 
  Country: None (occurrence: None)
  Receive Date: 20101223
  Receipt Date: 20101215
  Transmission Date: 20110411
  Serious: Yes (Hospitalization)
  Sender: FDA-Public Use
  Company Number: DE-AMGEN-DEUSP2010011045

PATIENT

DRUGS (3)
  1. ENBREL [Suspect]
     Indication: POLYARTHRITIS
     Dosage: UNK
     Route: 058
     Dates: start: 20000101, end: 20091001
  2. ENBREL [Suspect]
     Dosage: 50 MG, WEEKLY
     Route: 058
     Dates: start: 20091001
  3. LEVOTHYROXINE SODIUM [Concomitant]
     Dosage: 50 UG, 1X/DAY

REACTIONS (6)
  - ANAL ULCER HAEMORRHAGE [None]
  - FOREIGN BODY [None]
  - GASTRITIS [None]
  - GASTROINTESTINAL HAEMORRHAGE [None]
  - HAEMORRHOIDS [None]
  - POST PROCEDURAL COMPLICATION [None]
